FAERS Safety Report 7662780-1 (Version None)
Quarter: 2011Q3

REPORT INFORMATION
  Report Type: 
  Country: None (occurrence: None)
  Receive Date: 20110805
  Receipt Date: 20100826
  Transmission Date: 20111222
  Serious: No
  Sender: FDA-Public Use
  Company Number: US-ABBOTT-10P-163-0666484-00

PATIENT
  Sex: Female
  Weight: 81.72 kg

DRUGS (2)
  1. ASPIRIN [Concomitant]
     Indication: PRODUCT USED FOR UNKNOWN INDICATION
     Dosage: AT BEDTIME
  2. NIASPAN [Suspect]
     Indication: LOW DENSITY LIPOPROTEIN INCREASED
     Dates: start: 20100825

REACTIONS (4)
  - ERYTHEMA [None]
  - ABDOMINAL DISCOMFORT [None]
  - SKIN BURNING SENSATION [None]
  - PARAESTHESIA [None]
